FAERS Safety Report 6040928-2 (Version None)
Quarter: 2009Q1

REPORT INFORMATION
  Report Type: 
  Country: None (occurrence: None)
  Receive Date: 20090116
  Receipt Date: 20080905
  Transmission Date: 20090719
  Serious: No
  Sender: FDA-Public Use
  Company Number: US-BRISTOL-MYERS SQUIBB COMPANY-14245674

PATIENT
  Age: 63 Year
  Sex: Male
  Weight: 93 kg

DRUGS (3)
  1. ABILIFY [Suspect]
     Indication: BIPOLAR DISORDER
     Dosage: 2.5MG DAILY FOR 10 DAYS THEN DOSE INCREASED TO 5MG DAILY
  2. LAMOTRIGINE [Concomitant]
  3. ATENOLOL [Concomitant]

REACTIONS (1)
  - INSOMNIA [None]
